FAERS Safety Report 10071379 (Version 1)
Quarter: 2014Q2

REPORT INFORMATION
  Report Type: Spontaneous
  Country: GB (occurrence: GB)
  Receive Date: 20140410
  Receipt Date: 20140410
  Transmission Date: 20141212
  Serious: Yes (Disabling, Other)
  Sender: FDA-Public Use
  Company Number: PHHY2014GB039925

PATIENT
  Sex: 0

DRUGS (7)
  1. GABAPENTIN [Suspect]
     Indication: NEURALGIA
     Dosage: 5 ML, UNK
     Route: 048
     Dates: start: 20140131, end: 20140211
  2. GABAPENTIN [Suspect]
     Dosage: 5 ML, BID
     Route: 048
  3. CYKLOKAPRON [Concomitant]
     Indication: HAEMORRHAGE
     Dosage: 500 MG, TID
  4. FENTANYL [Concomitant]
  5. MORPHINE [Concomitant]
     Dosage: 90 MG, UNK
  6. ORAMORPH [Concomitant]
     Indication: PAIN
  7. ORAMORPH [Concomitant]

REACTIONS (3)
  - Increased bronchial secretion [Recovered/Resolved]
  - Hypersensitivity [Recovered/Resolved]
  - Cough [Recovered/Resolved]
